FAERS Safety Report 10151242 (Version 2)
Quarter: 2014Q2

REPORT INFORMATION
  Report Type: Spontaneous
  Country: FR (occurrence: FR)
  Receive Date: 20140504
  Receipt Date: 20140504
  Transmission Date: 20141212
  Serious: Yes (Hospitalization, Other)
  Sender: FDA-Public Use
  Company Number: FR-009507513-1008FRA00055

PATIENT
  Age: 59 Year
  Sex: Male

DRUGS (5)
  1. INEGY [Suspect]
     Indication: HYPERCHOLESTEROLAEMIA
     Route: 048
  2. PANDEMRIX H1N1 [Suspect]
     Indication: PROPHYLAXIS
     Route: 030
     Dates: start: 20091127, end: 20091127
  3. INEXIUM [Suspect]
     Indication: GASTROOESOPHAGEAL REFLUX DISEASE
     Route: 048
  4. OMEXEL [Suspect]
     Indication: PROSTATIC ADENOMA
     Route: 048
  5. CORTICOSTEROIDS (UNSPECIFIED) [Concomitant]
     Indication: BONE PAIN
     Dosage: UNK, PRN
     Route: 048

REACTIONS (8)
  - Dyspnoea exertional [Not Recovered/Not Resolved]
  - Cough [Not Recovered/Not Resolved]
  - Sinusitis [Not Recovered/Not Resolved]
  - Restrictive pulmonary disease [Not Recovered/Not Resolved]
  - Asthma [Not Recovered/Not Resolved]
  - Eosinophilia [Not Recovered/Not Resolved]
  - Mantle cell lymphoma [Not Recovered/Not Resolved]
  - Eosinophilic pneumonia chronic [Unknown]
